FAERS Safety Report 7218951-1 (Version None)
Quarter: 2011Q1

REPORT INFORMATION
  Report Type: 
  Country: None (occurrence: None)
  Receive Date: 20110111
  Receipt Date: 20101230
  Transmission Date: 20110831
  Serious: Yes (Hospitalization)
  Sender: FDA-Public Use
  Company Number: US-BIOGENIDEC-2010BI038464

PATIENT
  Age: 64 Year
  Sex: Female

DRUGS (5)
  1. TYSABRI [Suspect]
     Indication: MULTIPLE SCLEROSIS
     Route: 042
     Dates: start: 20050131, end: 20050101
  2. LISINOPRIL [Concomitant]
  3. SYNTHROID [Concomitant]
  4. TYSABRI [Suspect]
     Route: 042
     Dates: start: 20070806
  5. AVONEX [Concomitant]
     Indication: MULTIPLE SCLEROSIS
     Route: 030
     Dates: start: 20010724

REACTIONS (10)
  - PALPITATIONS [None]
  - GOUT [None]
  - ANAEMIA [None]
  - DEHYDRATION [None]
  - HEADACHE [None]
  - SYNCOPE [None]
  - DRUG INEFFECTIVE [None]
  - OSTEOMYELITIS [None]
  - LACERATION [None]
  - DIASTOLIC DYSFUNCTION [None]
